FAERS Safety Report 10676703 (Version 1)
Quarter: 2014Q4

REPORT INFORMATION
  Report Type: Spontaneous
  Country: US (occurrence: None)
  Receive Date: 20141223
  Receipt Date: 20141223
  Transmission Date: 20150529
  Serious: Yes (Life-Threatening)
  Sender: FDA-Public Use
  Company Number: None

PATIENT
  Age: 57 Year
  Sex: Female
  Weight: 83.01 kg

DRUGS (1)
  1. FEXOFENADINE HCL 180 MG [Suspect]
     Active Substance: FEXOFENADINE HYDROCHLORIDE
     Indication: MULTIPLE ALLERGIES
     Dosage: 1 TABLET 24 HOURS
     Route: 048
     Dates: start: 20141212, end: 20141212

REACTIONS (5)
  - Tinnitus [None]
  - Nausea [None]
  - Blood pressure increased [None]
  - Head discomfort [None]
  - Dizziness [None]

NARRATIVE: CASE EVENT DATE: 20141212
